FAERS Safety Report 4489154-9 (Version None)
Quarter: 2004Q4

REPORT INFORMATION
  Report Type: 
  Country: None (occurrence: None)
  Receive Date: 20041029
  Receipt Date: 20020723
  Transmission Date: 20050328
  Serious: Yes (Death, Other)
  Sender: FDA-Public Use
  Company Number: US-AMGEN-KDL016281

PATIENT
  Sex: Male
  Weight: 68.6 kg

DRUGS (3)
  1. PROCRIT [Suspect]
     Indication: MYELODYSPLASTIC SYNDROME
     Route: 058
     Dates: start: 19980301
  2. CARDURA [Concomitant]
  3. MULTI-VITAMINS [Concomitant]

REACTIONS (4)
  - BONE MARROW DEPRESSION [None]
  - CONDITION AGGRAVATED [None]
  - DEATH [None]
  - MYELODYSPLASTIC SYNDROME [None]
